FAERS Safety Report 21303658 (Version 1)
Quarter: 2022Q3

REPORT INFORMATION
  Report Type: Spontaneous
  Country: US (occurrence: None)
  Receive Date: 20220907
  Receipt Date: 20220907
  Transmission Date: 20221026
  Serious: Yes (Other)
  Sender: FDA-Public Use
  Company Number: None

PATIENT
  Age: 24 Year
  Sex: Male
  Weight: 81 kg

DRUGS (5)
  1. PAXLOVID [Suspect]
     Active Substance: NIRMATRELVIR\RITONAVIR
     Indication: COVID-19
     Dosage: FREQUENCY : TWICE A DAY;?
     Route: 048
     Dates: start: 20220906, end: 20220907
  2. IBUPROFEN [Concomitant]
     Active Substance: IBUPROFEN
     Dates: start: 20220501
  3. Day Quil [Concomitant]
     Dates: start: 20220903
  4. Night Quil [Concomitant]
     Dates: start: 20220903
  5. Immunity Gummies [Concomitant]
     Dates: start: 20220901

REACTIONS (2)
  - Erythema [None]
  - Rash [None]

NARRATIVE: CASE EVENT DATE: 20220907
